FAERS Safety Report 13746606 (Version 2)
Quarter: 2018Q3

REPORT INFORMATION
  Report Type: Spontaneous
  Country: US (occurrence: US)
  Receive Date: 20170712
  Receipt Date: 20180821
  Transmission Date: 20181010
  Serious: Yes (Other)
  Sender: FDA-Public Use
  Company Number: US-BAYER-2017-133701

PATIENT
  Age: 34 Year
  Sex: Female
  Weight: 92.52 kg

DRUGS (1)
  1. MIRENA [Suspect]
     Active Substance: LEVONORGESTREL
     Indication: CONTRACEPTION
     Dosage: 20 MCG/24HR, CONT
     Route: 015
     Dates: start: 20170505, end: 201707

REACTIONS (4)
  - Caesarean section [None]
  - Pregnancy with contraceptive device [None]
  - Device expulsion [None]
  - Drug ineffective [None]

NARRATIVE: CASE EVENT DATE: 201707
